FAERS Safety Report 10707666 (Version 9)
Quarter: 2015Q3

REPORT INFORMATION
  Report Type: Spontaneous
  Country: US (occurrence: US)
  Receive Date: 20150113
  Receipt Date: 20150928
  Transmission Date: 20151125
  Serious: Yes (Other)
  Sender: FDA-Public Use
  Company Number: US-GLAXOSMITHKLINE-A1090631A

PATIENT

DRUGS (9)
  1. NAMENDA XR [Concomitant]
     Active Substance: MEMANTINE HYDROCHLORIDE
  2. AGGRENOX [Concomitant]
     Active Substance: ASPIRIN\DIPYRIDAMOLE
  3. LAMICTAL [Suspect]
     Active Substance: LAMOTRIGINE
     Indication: BIPOLAR DISORDER
     Dosage: UNK, U
     Route: 065
     Dates: start: 2005
  4. LAMICTAL [Suspect]
     Active Substance: LAMOTRIGINE
     Dosage: 200 MG, BID
     Route: 048
  5. LAMICTAL [Suspect]
     Active Substance: LAMOTRIGINE
     Dosage: UNK, U
  6. DONEPEZIL. [Concomitant]
     Active Substance: DONEPEZIL
  7. PAROXETINE [Concomitant]
     Active Substance: PAROXETINE\PAROXETINE HYDROCHLORIDE
  8. LORAZEPAM. [Concomitant]
     Active Substance: LORAZEPAM
  9. METOPROLOL TARTRATE. [Concomitant]
     Active Substance: METOPROLOL TARTRATE

REACTIONS (12)
  - Balance disorder [Unknown]
  - Viral infection [Not Recovered/Not Resolved]
  - Ataxia [Not Recovered/Not Resolved]
  - Dementia [Not Recovered/Not Resolved]
  - Speech disorder [Unknown]
  - Cough [Not Recovered/Not Resolved]
  - Cerebrovascular accident [Recovered/Resolved]
  - Gait disturbance [Unknown]
  - Vascular dementia [Not Recovered/Not Resolved]
  - Transient ischaemic attack [Not Recovered/Not Resolved]
  - Fall [Unknown]
  - Ligament sprain [Recovering/Resolving]

NARRATIVE: CASE EVENT DATE: 2012
